FAERS Safety Report 6726412-9 (Version None)
Quarter: 2010Q2

REPORT INFORMATION
  Report Type: 
  Country: None (occurrence: None)
  Receive Date: 20100514
  Receipt Date: 20100503
  Transmission Date: 20101027
  Serious: Yes (Hospitalization)
  Sender: FDA-Public Use
  Company Number: US-ELI_LILLY_AND_COMPANY-US201005002867

PATIENT
  Sex: Male
  Weight: 75.45 kg

DRUGS (18)
  1. GEMCITABINE HCL [Suspect]
     Indication: NON-SMALL CELL LUNG CANCER STAGE IIIB
     Dosage: 1930 MG, OTHER
     Route: 042
     Dates: start: 20100419, end: 20100427
  2. CETUXIMAB [Suspect]
     Indication: NON-SMALL CELL LUNG CANCER STAGE IIIB
     Dosage: 482 MG, OTHER
     Route: 042
     Dates: start: 20100419, end: 20100427
  3. CISPLATIN [Suspect]
     Indication: NON-SMALL CELL LUNG CANCER STAGE IIIB
     Dosage: 145 MG, OTHER
     Route: 042
     Dates: start: 20100419, end: 20100419
  4. ATENOLOL [Concomitant]
     Dosage: 25 MG, DAILY (1/D)
  5. ASPIRIN [Concomitant]
     Dosage: 81 MG, DAILY (1/D)
  6. PRAVASTATIN [Concomitant]
     Dosage: 40 MG, EACH EVENING
  7. TRIAMTERENE AND HYDROCHLOROTHIAZIDE [Concomitant]
     Dosage: 1 D/F, DAILY (1/D)
  8. ALPRAZOLAM [Concomitant]
     Indication: ANXIETY
     Dosage: 0.25 MG, AS NEEDED
     Dates: start: 20100406
  9. VALIUM [Concomitant]
     Dosage: 10 MG, DAILY (1/D)
     Dates: start: 20100407
  10. PROCHLORPERAZINE [Concomitant]
     Indication: NAUSEA
     Dosage: 10 MG, AS NEEDED
     Dates: start: 20100419
  11. EMEND [Concomitant]
     Dates: start: 20100419, end: 20100421
  12. NEXIUM [Concomitant]
     Dosage: 20 MG, DAILY (1/D)
  13. DOXYCYCLINE [Concomitant]
     Dosage: 100 MG, 2/D
     Dates: start: 20100427, end: 20100428
  14. ZOFRAN [Concomitant]
  15. ATIVAN [Concomitant]
  16. TYLENOL                                 /SCH/ [Concomitant]
  17. TUMS [Concomitant]
  18. PROSTATE GLAND EXTRACT [Concomitant]
     Dosage: 1 D/F, DAILY (1/D)

REACTIONS (1)
  - RENAL FAILURE ACUTE [None]
